FAERS Safety Report 6600906-9 (Version None)
Quarter: 2010Q1

REPORT INFORMATION
  Report Type: 
  Country: None (occurrence: None)
  Receive Date: 20100224
  Receipt Date: 20100224
  Transmission Date: 20100710
  Serious: Yes (Other)
  Sender: FDA-Public Use
  Company Number: None

PATIENT
  Sex: Male
  Weight: 68.9467 kg

DRUGS (6)
  1. VANCOMYCIN [Suspect]
     Indication: ANTIBIOTIC THERAPY
     Dosage: I.V.
     Route: 042
     Dates: start: 20090608
  2. VANCOMYCIN [Suspect]
     Indication: SURGERY
     Dosage: I.V.
     Route: 042
     Dates: start: 20090608
  3. ZIPRASIDONE HCL [Concomitant]
  4. CALCIUM GLUCONATE [Concomitant]
  5. PROPRANOLOL [Concomitant]
  6. OMEPRAZOLE [Concomitant]

REACTIONS (2)
  - BLISTER [None]
  - RASH ERYTHEMATOUS [None]
